FAERS Safety Report 10171001 (Version 6)
Quarter: 2015Q2

REPORT INFORMATION
  Report Type: Spontaneous
  Country: DE (occurrence: DE)
  Receive Date: 20140514
  Receipt Date: 20150601
  Transmission Date: 20150821
  Serious: Yes (Other)
  Sender: FDA-Public Use
  Company Number: DE-ASTELLAS-2014EU004379

PATIENT
  Age: 59 Year
  Sex: Male

DRUGS (2)
  1. XTANDI [Suspect]
     Active Substance: ENZALUTAMIDE
     Route: 048
     Dates: start: 20141027
  2. XTANDI [Suspect]
     Active Substance: ENZALUTAMIDE
     Indication: PROSTATE CANCER METASTATIC
     Route: 048
     Dates: start: 20130901, end: 20140803

REACTIONS (10)
  - Prostatic specific antigen increased [Recovering/Resolving]
  - Dry skin [Not Recovered/Not Resolved]
  - Dyspnoea [Unknown]
  - Blood testosterone increased [Not Recovered/Not Resolved]
  - Pruritus [Not Recovered/Not Resolved]
  - Hyperhidrosis [Unknown]
  - Fatigue [Not Recovered/Not Resolved]
  - Blood cholesterol increased [Not Recovered/Not Resolved]
  - Alopecia [Unknown]
  - Body height decreased [Not Recovered/Not Resolved]

NARRATIVE: CASE EVENT DATE: 20130902
